FAERS Safety Report 5226053-9 (Version None)
Quarter: 2007Q1

REPORT INFORMATION
  Report Type: 
  Country: None (occurrence: None)
  Receive Date: 20070201
  Receipt Date: 20070123
  Transmission Date: 20070707
  Serious: Yes (Hospitalization, Disabling)
  Sender: FDA-Public Use
  Company Number: US-PURDUE-USA_2007_0026277

PATIENT
  Age: 60 Year
  Sex: Female
  Weight: 51 kg

DRUGS (5)
  1. OXYCONTIN [Suspect]
     Indication: DRUG USE FOR UNKNOWN INDICATION
     Dosage: UNK UNK, UNK
     Route: 065
     Dates: end: 20061014
  2. LAPATINIB [Suspect]
     Indication: BREAST CANCER METASTATIC
     Dosage: 1250 MG, DAILY
     Route: 048
     Dates: start: 20060915, end: 20061013
  3. CAPECITABINE [Suspect]
     Indication: BREAST CANCER METASTATIC
     Dosage: 3000 MG, DAILY
     Route: 048
     Dates: start: 20060915, end: 20061013
  4. ZOLPIDEM TARTRATE [Concomitant]
  5. PERCOCET [Concomitant]

REACTIONS (10)
  - AMMONIA INCREASED [None]
  - ASTHENIA [None]
  - COMMUNICATION DISORDER [None]
  - CONFUSIONAL STATE [None]
  - DECREASED APPETITE [None]
  - FALL [None]
  - LETHARGY [None]
  - MENTAL STATUS CHANGES [None]
  - ORAL INTAKE REDUCED [None]
  - WEIGHT DECREASED [None]
